FAERS Safety Report 17251084 (Version 1)
Quarter: 2020Q1

REPORT INFORMATION
  Report Type: Spontaneous
  Country: FR (occurrence: FR)
  Receive Date: 20200109
  Receipt Date: 20200109
  Transmission Date: 20200409
  Serious: Yes (Other)
  Sender: FDA-Public Use
  Company Number: FR-ACCORD-168931

PATIENT
  Age: 51 Year
  Sex: Male

DRUGS (2)
  1. RAMIPRIL. [Suspect]
     Active Substance: RAMIPRIL
     Indication: HYPERTENSION
     Dosage: NOT KNOWN
     Route: 048
     Dates: start: 2015, end: 2018
  2. PERINDOPRIL [Suspect]
     Active Substance: PERINDOPRIL
     Indication: HYPERTENSION
     Route: 048
     Dates: start: 20190121

REACTIONS (2)
  - Pruritus [Recovering/Resolving]
  - Porokeratosis [Recovering/Resolving]

NARRATIVE: CASE EVENT DATE: 2016
